FAERS Safety Report 8164001-2 (Version None)
Quarter: 2012Q1

REPORT INFORMATION
  Report Type: 
  Country: None (occurrence: None)
  Receive Date: 20120224
  Receipt Date: 20120209
  Transmission Date: 20120608
  Serious: Yes (Other)
  Sender: FDA-Public Use
  Company Number: CHPA2012US003048

PATIENT
  Age: 69 Year
  Sex: Female

DRUGS (1)
  1. EXCEDRIN (MIGRAINE) [Suspect]
     Indication: HEADACHE
     Dosage: 2 DF, TWICE
     Route: 048

REACTIONS (6)
  - PRURITUS [None]
  - FEMUR FRACTURE [None]
  - URTICARIA [None]
  - FALL [None]
  - FIBROMYALGIA [None]
  - HYPERSENSITIVITY [None]
